FAERS Safety Report 12837853 (Version 5)
Quarter: 2017Q1

REPORT INFORMATION
  Report Type: Report from Study
  Country: KR (occurrence: KR)
  Receive Date: 20161012
  Receipt Date: 20170217
  Transmission Date: 20170428
  Serious: Yes (Hospitalization)
  Sender: FDA-Public Use
  Company Number: KR-ROCHE-1654333

PATIENT
  Age: 45 Year
  Sex: Female
  Weight: 69.4 kg

DRUGS (40)
  1. VENTOLIN [Concomitant]
     Active Substance: ALBUTEROL SULFATE
     Indication: ASTHMA
     Dosage: 10-15 TIMES DAILY
     Route: 050
     Dates: start: 20160211, end: 20160215
  2. TARGIN [Concomitant]
     Active Substance: NALOXONE HYDROCHLORIDE\OXYCODONE HYDROCHLORIDE
     Indication: PAIN
     Dosage: 10-20 MG DAILY
     Route: 048
     Dates: start: 20160107, end: 20160129
  3. TARGIN [Concomitant]
     Active Substance: NALOXONE HYDROCHLORIDE\OXYCODONE HYDROCHLORIDE
     Dosage: 5-10 MG DAILY DOSE
     Route: 048
     Dates: start: 20160106, end: 20160107
  4. MEGESTROL [Concomitant]
     Active Substance: MEGESTROL
     Indication: DECREASED APPETITE
     Route: 048
     Dates: start: 20151030, end: 20151104
  5. MACPERAN [Concomitant]
     Active Substance: METOCLOPRAMIDE HYDROCHLORIDE
     Indication: NAUSEA
     Route: 042
     Dates: start: 20151030, end: 20151030
  6. ROCEPHIN [Concomitant]
     Active Substance: CEFTRIAXONE SODIUM
     Route: 042
     Dates: start: 20160107, end: 20160110
  7. TANTUM (SOUTH KOREA) [Concomitant]
     Indication: NAUSEA
     Route: 065
     Dates: start: 20151028, end: 20151028
  8. EMEND [Concomitant]
     Active Substance: APREPITANT
     Indication: NAUSEA
     Route: 042
     Dates: start: 20160216
  9. TRASTUZUMAB EMTANSINE [Suspect]
     Active Substance: ADO-TRASTUZUMAB EMTANSINE
     Route: 042
     Dates: start: 20160105
  10. TRASTUZUMAB EMTANSINE [Suspect]
     Active Substance: ADO-TRASTUZUMAB EMTANSINE
     Route: 042
     Dates: start: 20160127, end: 20160210
  11. ATROVENT UDV [Concomitant]
     Active Substance: IPRATROPIUM BROMIDE
     Indication: DYSPNOEA
     Dosage: 500MMG/2ML
     Route: 065
     Dates: start: 20160211, end: 20160215
  12. TYLENOL [Concomitant]
     Active Substance: ACETAMINOPHEN
     Dosage: DAILY DOSE: 3 TAQBLETS DAILY?EXTENDED RELEASE
     Route: 048
     Dates: start: 20160129
  13. ZYPREXA ZYDIS [Concomitant]
     Active Substance: OLANZAPINE
     Dosage: DAILY DOSE: 1
     Route: 048
     Dates: start: 20151211, end: 20151211
  14. TAZOPERAN (PIPERACILLIN SODIUM) [Concomitant]
     Dosage: 1-3 VIAL
     Route: 065
     Dates: start: 20160111, end: 20160113
  15. TRASTUZUMAB EMTANSINE [Suspect]
     Active Substance: ADO-TRASTUZUMAB EMTANSINE
     Route: 042
     Dates: start: 20151119
  16. DEXAMETHASONE. [Concomitant]
     Active Substance: DEXAMETHASONE
     Route: 042
     Dates: end: 20151021
  17. MOTILITONE [Concomitant]
     Active Substance: HERBALS
     Dosage: 1-3
     Route: 048
     Dates: start: 20151118, end: 20151202
  18. ALOXI [Concomitant]
     Active Substance: PALONOSETRON HYDROCHLORIDE
     Route: 042
     Dates: start: 20160105
  19. TRASTUZUMAB EMTANSINE [Suspect]
     Active Substance: ADO-TRASTUZUMAB EMTANSINE
     Indication: BREAST CANCER
     Dosage: 3.6 G/KG
     Route: 042
     Dates: start: 20151021, end: 20151021
  20. CURAN [Concomitant]
     Active Substance: RANITIDINE HYDROCHLORIDE
     Indication: GASTRIC DISORDER
     Route: 048
     Dates: start: 20160113, end: 20160530
  21. TRIDOL [Concomitant]
     Active Substance: TRAMADOL HYDROCHLORIDE
     Indication: PAIN
     Route: 042
     Dates: start: 20160210, end: 20160210
  22. TARGIN [Concomitant]
     Active Substance: NALOXONE HYDROCHLORIDE\OXYCODONE HYDROCHLORIDE
     Dosage: 10-20 MG DAILY
     Route: 048
     Dates: start: 20160211
  23. TRIDOL [Concomitant]
     Active Substance: TRAMADOL HYDROCHLORIDE
     Route: 042
     Dates: start: 20151027, end: 20151101
  24. ZOMEBON [Concomitant]
     Dosage: DAILY DOSE: 1
     Route: 042
     Dates: end: 20130401
  25. TACOPEN [Concomitant]
     Route: 048
     Dates: start: 20151022, end: 20151022
  26. TRIDOL [Concomitant]
     Active Substance: TRAMADOL HYDROCHLORIDE
     Route: 042
     Dates: start: 20151022, end: 20151022
  27. TRIDOL [Concomitant]
     Active Substance: TRAMADOL HYDROCHLORIDE
     Route: 042
     Dates: start: 20160108, end: 20160108
  28. ZYPREXA ZYDIS [Concomitant]
     Active Substance: OLANZAPINE
     Dosage: DAILY DOSE: 1
     Route: 048
     Dates: start: 20160104
  29. URSA [Concomitant]
     Route: 048
     Dates: start: 20151103, end: 20151117
  30. BANAN [Concomitant]
     Active Substance: CEFPODOXIME PROXETIL
     Route: 048
     Dates: start: 20160113, end: 20160117
  31. TRASTUZUMAB EMTANSINE [Suspect]
     Active Substance: ADO-TRASTUZUMAB EMTANSINE
     Route: 042
     Dates: start: 20151210
  32. ATROVENT UDV [Concomitant]
     Active Substance: IPRATROPIUM BROMIDE
     Indication: ASTHMA
  33. NEXIUM [Concomitant]
     Active Substance: ESOMEPRAZOLE MAGNESIUM
     Dosage: 1 DAILY DOSE
     Route: 048
     Dates: start: 20151020, end: 20151105
  34. TYLENOL [Concomitant]
     Active Substance: ACETAMINOPHEN
     Dosage: DAILY DOSE: 1-3?EXTENDED RELEASE
     Route: 048
     Dates: start: 20160108, end: 20160126
  35. ZYPREXA ZYDIS [Concomitant]
     Active Substance: OLANZAPINE
     Indication: INSOMNIA
     Dosage: DAILY DOSE: 1
     Route: 048
     Dates: start: 20151020, end: 20151123
  36. BANAN [Concomitant]
     Active Substance: CEFPODOXIME PROXETIL
     Indication: INFECTION
     Route: 048
     Dates: start: 20151105, end: 20151111
  37. ENDOXAN [Concomitant]
     Active Substance: CYCLOPHOSPHAMIDE
     Indication: BREAST CANCER
     Route: 042
     Dates: start: 20160216
  38. TYLENOL [Concomitant]
     Active Substance: ACETAMINOPHEN
     Indication: PAIN
     Dosage: DAILY DOSE: 1-3?EXTENDED RELEASE
     Route: 048
     Dates: start: 20151021, end: 20160129
  39. CRAVIT [Concomitant]
     Active Substance: LEVOFLOXACIN
     Route: 048
     Dates: start: 20160111, end: 20160112
  40. CRAVIT [Concomitant]
     Active Substance: LEVOFLOXACIN
     Route: 065
     Dates: start: 20160113, end: 20160122

REACTIONS (12)
  - Cough [Recovering/Resolving]
  - C-reactive protein increased [Recovered/Resolved]
  - Haemoptysis [Recovered/Resolved]
  - Platelet count decreased [Recovered/Resolved]
  - Aspartate aminotransferase increased [Recovering/Resolving]
  - Abdominal pain [Recovered/Resolved]
  - Constipation [Recovered/Resolved]
  - Pyrexia [Recovered/Resolved]
  - Productive cough [Recovering/Resolving]
  - Oropharyngeal pain [Recovered/Resolved]
  - Alanine aminotransferase increased [Recovered/Resolved]
  - Myalgia [Not Recovered/Not Resolved]

NARRATIVE: CASE EVENT DATE: 20151022
